FAERS Safety Report 17509827 (Version 1)
Quarter: 2020Q1

REPORT INFORMATION
  Report Type: Spontaneous
  Country: US (occurrence: US)
  Receive Date: 20200226
  Receipt Date: 20200226
  Transmission Date: 20200409
  Serious: No
  Sender: FDA-Public Use
  Company Number: None

PATIENT
  Age: 59 Year
  Sex: Male

DRUGS (1)
  1. MONOVISC INJ 88MG/4ML [Suspect]
     Active Substance: DEVICE
     Indication: OSTEOARTHRITIS
     Dosage: ?          OTHER
     Route: 014
     Dates: start: 202002

REACTIONS (1)
  - Off label use [None]

NARRATIVE: CASE EVENT DATE: 20200226
